FAERS Safety Report 14620551 (Version 1)
Quarter: 2018Q1

REPORT INFORMATION
  Report Type: Spontaneous
  Country: US (occurrence: US)
  Receive Date: 20180309
  Receipt Date: 20180309
  Transmission Date: 20180509
  Serious: No
  Sender: FDA-Public Use
  Company Number: US-SA-2017SA210998

PATIENT
  Age: 88 Year
  Sex: Female

DRUGS (3)
  1. ELITEK [Suspect]
     Active Substance: RASBURICASE
     Indication: LYMPHOMA
     Route: 042
     Dates: start: 2017
  2. ELITEK [Suspect]
     Active Substance: RASBURICASE
     Indication: LYMPHOMA
     Route: 042
     Dates: start: 20171011
  3. RITUXAN [Suspect]
     Active Substance: RITUXIMAB
     Route: 065

REACTIONS (2)
  - Hyperuricaemia [Unknown]
  - Drug ineffective [Unknown]
